FAERS Safety Report 9189338 (Version 10)
Quarter: 2014Q4

REPORT INFORMATION
  Report Type: Report from Study
  Country: AT (occurrence: AT)
  Receive Date: 20130326
  Receipt Date: 20141113
  Transmission Date: 20150529
  Serious: Yes (Hospitalization, Other)
  Sender: FDA-Public Use
  Company Number: PHHO2013AT004119

PATIENT
  Age: 8 Year
  Sex: Female
  Weight: 29 kg

DRUGS (9)
  1. PREDNISOLONE. [Concomitant]
     Active Substance: PREDNISOLONE
     Dosage: 2.5 MG, Q48H
     Route: 065
     Dates: end: 20131025
  2. METHOTREXATE [Concomitant]
     Active Substance: METHOTREXATE
     Dosage: 12.5 MG, QW
     Route: 065
  3. OSPEN [Concomitant]
     Active Substance: PENICILLIN V
     Indication: ANTIBIOTIC THERAPY
     Dosage: UNK
     Route: 065
     Dates: start: 20131023, end: 20131025
  4. AUGMENTIN [Concomitant]
     Active Substance: AMOXICILLIN\CLAVULANATE POTASSIUM
     Dosage: 1 G, QD (3X1 DAY)
     Dates: start: 20131025
  5. TAMIFLU [Concomitant]
     Active Substance: OSELTAMIVIR PHOSPHATE
     Indication: ANTIVIRAL TREATMENT
     Dosage: 600 MG, BID(2XD)
     Route: 065
     Dates: start: 20130315, end: 20130319
  6. PREDNISOLONE. [Concomitant]
     Active Substance: PREDNISOLONE
     Indication: ANTIINFLAMMATORY THERAPY
     Dosage: 7.5 MG, QD
     Route: 065
     Dates: start: 20120511, end: 20130319
  7. METHOTREXATE [Concomitant]
     Active Substance: METHOTREXATE
     Indication: RHEUMATIC DISORDER
     Dosage: 10 MG, QW
     Route: 065
     Dates: start: 201208, end: 201303
  8. AUGMENTIN [Concomitant]
     Active Substance: AMOXICILLIN\CLAVULANATE POTASSIUM
     Indication: ANTIBIOTIC THERAPY
     Dosage: 457 MG, TID (3X D)
     Route: 065
     Dates: start: 20130315, end: 20130318
  9. ACZ885 [Suspect]
     Active Substance: CANAKINUMAB
     Indication: JUVENILE IDIOPATHIC ARTHRITIS
     Dosage: 4 MG/KG, QW4 (EVERY 4 WEEKS)
     Route: 058
     Dates: start: 20121109, end: 20131010

REACTIONS (4)
  - Histiocytosis haematophagic [Recovered/Resolved]
  - Juvenile idiopathic arthritis [Recovered/Resolved]
  - Staphylococcal sepsis [Recovered/Resolved]
  - Haemorrhage [Recovered/Resolved]

NARRATIVE: CASE EVENT DATE: 20130319
